FAERS Safety Report 8935327 (Version 1)
Quarter: 2012Q4

REPORT INFORMATION
  Report Type: Report from Study
  Country: AU (occurrence: AU)
  Receive Date: 20121129
  Receipt Date: 20121129
  Transmission Date: 20130627
  Serious: Yes (Other)
  Sender: FDA-Public Use
  Company Number: AU-ROCHE-1160967

PATIENT
  Sex: Female

DRUGS (1)
  1. RITUXIMAB [Suspect]
     Indication: MYASTHENIA GRAVIS
     Route: 042
     Dates: start: 20101012

REACTIONS (6)
  - Muscular weakness [Unknown]
  - B-lymphocyte count decreased [Unknown]
  - Muscular weakness [Unknown]
  - Eyelid ptosis [Unknown]
  - Diplopia [Unknown]
  - Dyspnoea exertional [Unknown]
